FAERS Safety Report 9359142 (Version 1)
Quarter: 2013Q2

REPORT INFORMATION
  Report Type: Spontaneous
  Country: CA (occurrence: CA)
  Receive Date: 20130620
  Receipt Date: 20130620
  Transmission Date: 20140414
  Serious: Yes (Hospitalization)
  Sender: FDA-Public Use
  Company Number: CA-B.I. PHARMACEUTICALS,INC./RIDGEFIELD-2013-CN-01116CN

PATIENT
  Age: 76 Year
  Sex: Male
  Weight: 102 kg

DRUGS (1)
  1. PRADAX [Suspect]
     Dosage: 300 MG
     Route: 065

REACTIONS (4)
  - Duodenitis [Unknown]
  - Gastritis [Unknown]
  - Haemoglobin decreased [Unknown]
  - Upper gastrointestinal haemorrhage [Unknown]
